FAERS Safety Report 7346408-6 (Version None)
Quarter: 2011Q1

REPORT INFORMATION
  Report Type: 
  Country: None (occurrence: None)
  Receive Date: 20110311
  Receipt Date: 20110307
  Transmission Date: 20110831
  Serious: Yes (Death)
  Sender: FDA-Public Use
  Company Number: US-RB-023280-11

PATIENT
  Age: 56 Year
  Sex: Male

DRUGS (5)
  1. SUBOXONE [Suspect]
     Indication: PRODUCT USED FOR UNKNOWN INDICATION
     Dosage: UNKNOWN DOSING DETAILS
     Route: 065
  2. SUBUTEX [Suspect]
     Indication: PRODUCT USED FOR UNKNOWN INDICATION
     Dosage: DOSING INFORMATION UNKNOWN
     Route: 065
  3. OXYCONTIN [Suspect]
     Indication: PAIN
     Dosage: UNKNOWN DOSING DETAILS
     Route: 065
  4. XANAX [Suspect]
     Indication: ANXIETY
     Dosage: DOSING INFORMATION UNKNOWN
     Route: 065
  5. NEURONTIN [Suspect]
     Indication: RESTLESS LEGS SYNDROME
     Dosage: UNKNOWN DOSING DETAILS
     Route: 065

REACTIONS (13)
  - DYSARTHRIA [None]
  - DRUG WITHDRAWAL SYNDROME [None]
  - DROOLING [None]
  - ANXIETY [None]
  - LUNG DISORDER [None]
  - MEMORY IMPAIRMENT [None]
  - FALL [None]
  - CEREBRAL THROMBOSIS [None]
  - RESTLESS LEGS SYNDROME [None]
  - MYOCARDIAL INFARCTION [None]
  - HEAD INJURY [None]
  - SUBSTANCE ABUSE [None]
  - HEADACHE [None]
